FAERS Safety Report 8191280 (Version 2)
Quarter: 2014Q1

REPORT INFORMATION
  Report Type: Spontaneous
  Country: US (occurrence: US)
  Receive Date: 20111020
  Receipt Date: 20140124
  Transmission Date: 20141002
  Serious: Yes (Hospitalization, Other)
  Sender: FDA-Public Use
  Company Number: US-ASTRAZENECA-2011SE55858

PATIENT
  Age: 60 Year
  Sex: Male
  Weight: 108.9 kg

DRUGS (14)
  1. TENORMIN [Suspect]
     Indication: BLOOD PRESSURE ABNORMAL
     Route: 048
     Dates: start: 2005
  2. NEXIUM [Suspect]
     Indication: GASTROOESOPHAGEAL REFLUX DISEASE
     Route: 048
  3. NEXIUM [Suspect]
     Indication: ULCER HAEMORRHAGE
     Route: 048
  4. NEXIUM [Suspect]
     Indication: GASTROOESOPHAGEAL REFLUX DISEASE
     Route: 048
     Dates: start: 201109
  5. NEXIUM [Suspect]
     Indication: ULCER HAEMORRHAGE
     Route: 048
     Dates: start: 201109
  6. LISINOPRIL [Suspect]
     Indication: BLOOD PRESSURE ABNORMAL
     Route: 048
     Dates: start: 201303
  7. FLEXERIL [Concomitant]
  8. ULTRAM [Concomitant]
  9. ASPIRINE [Concomitant]
  10. HYDROCODONE [Concomitant]
  11. PROTONIX [Concomitant]
  12. DEXILANT [Concomitant]
  13. TRAMADOL [Concomitant]
     Indication: BACK PAIN
     Dosage: 50 MG Q8H PRN
     Route: 048
     Dates: start: 1994
  14. CYCLOBENZAPRINE [Concomitant]
     Indication: MUSCLE SPASMS
     Dosage: 10 MG ONCE TO TWICE A DAY
     Route: 048
     Dates: start: 1994

REACTIONS (16)
  - Gastrointestinal haemorrhage [Unknown]
  - Pancreatitis [Unknown]
  - Large intestine polyp [Unknown]
  - Oesophagitis [Unknown]
  - Duodenal ulcer [Unknown]
  - Barrett^s oesophagus [Unknown]
  - Pain [Unknown]
  - Adverse event [Unknown]
  - Renal cyst [Unknown]
  - Inguinal hernia [Unknown]
  - Abdominal pain [Unknown]
  - Abdominal pain upper [Not Recovered/Not Resolved]
  - Nausea [Unknown]
  - Diarrhoea [Unknown]
  - Vomiting [Unknown]
  - Drug dose omission [Not Recovered/Not Resolved]
